FAERS Safety Report 6844600-8 (Version None)
Quarter: 2010Q2

REPORT INFORMATION
  Report Type: 
  Country: None (occurrence: None)
  Receive Date: 20100629
  Receipt Date: 20100511
  Transmission Date: 20101027
  Serious: No
  Sender: FDA-Public Use
  Company Number: US-WYE-H15093010

PATIENT
  Age: 48 Year
  Sex: Female
  Weight: 129.39 kg

DRUGS (6)
  1. PRISTIQ [Suspect]
     Indication: DEPRESSION
     Dosage: 50 MG 1X PER 1 DAY, ORAL
     Route: 048
     Dates: start: 20100507, end: 20100507
  2. VITAMIN A AND D (ERGOCALCIFEROL/RETINOL) [Concomitant]
  3. LORTAB [Concomitant]
  4. PROTONIX [Concomitant]
  5. RANITIDINE [Concomitant]
  6. DEPAKOTE [Concomitant]

REACTIONS (4)
  - BURNING SENSATION [None]
  - EATING DISORDER [None]
  - NAUSEA [None]
  - VOMITING [None]
